FAERS Safety Report 25890978 (Version 3)
Quarter: 2025Q4

REPORT INFORMATION
  Report Type: Spontaneous
  Country: JP (occurrence: JP)
  Receive Date: 20251007
  Receipt Date: 20251202
  Transmission Date: 20260117
  Serious: Yes (Hospitalization, Other)
  Sender: OTSUKA
  Company Number: JP-MMM-Otsuka-BW12MNL8

PATIENT
  Age: 79 Year
  Sex: Female

DRUGS (3)
  1. REXULTI [Suspect]
     Active Substance: BREXPIPRAZOLE
     Indication: Delusion
     Dosage: 0.5 MG, DAILY
     Dates: start: 20250904, end: 20250924
  2. MAGNESIUM OXIDE [Concomitant]
     Active Substance: MAGNESIUM OXIDE
     Indication: Product used for unknown indication
     Dosage: 660 MG, DAILY
     Route: 065
  3. DAYVIGO [Concomitant]
     Active Substance: LEMBOREXANT
     Indication: Product used for unknown indication
     Dosage: 2.5 MG, DAILY
     Route: 065

REACTIONS (6)
  - General physical health deterioration [Not Recovered/Not Resolved]
  - Feeding disorder [Recovered/Resolved]
  - Dystonia [Recovered/Resolved]
  - Blood creatine phosphokinase increased [Recovered/Resolved]
  - Fall [Unknown]
  - Product use in unapproved indication [Unknown]

NARRATIVE: CASE EVENT DATE: 20250901
